FAERS Safety Report 8924129 (Version 3)
Quarter: 2012Q4

REPORT INFORMATION
  Report Type: Spontaneous
  Country: GB (occurrence: None)
  Receive Date: 20121116
  Receipt Date: 20121126
  Transmission Date: 20130627
  Serious: Yes (Hospitalization, Disabling, Other)
  Sender: FDA-Public Use
  Company Number: 1483367

PATIENT
  Age: 59 Year
  Sex: Female
  Weight: 99.6 kg

DRUGS (60)
  1. SERTRALINE [Concomitant]
  2. CHLORPHENAMINE [Concomitant]
  3. HYDROCORTISONE [Concomitant]
  4. CHLORHEXIDINE [Concomitant]
  5. SANDO K [Concomitant]
  6. CALCIUM GLUCONATE [Concomitant]
  7. FUROSEMIDE [Concomitant]
  8. LEVOPROMAZIN [Concomitant]
  9. BLOOD, WHOLE [Concomitant]
  10. ACTRAPID [Concomitant]
  11. HALOPERIDOL [Concomitant]
  12. METRONIDAZOLE [Concomitant]
  13. MAGNESIUM [Concomitant]
  14. DEXAMETHASONE [Concomitant]
  15. VANCOMYCIN [Concomitant]
  16. FOLIC ACID [Concomitant]
  17. GRANULOCYTE MACROPHAGE COLONY STIM FACTOR [Concomitant]
  18. PLATELETS [Concomitant]
  19. MIDAZOLAM [Concomitant]
  20. METARAMINOL [Concomitant]
  21. SPIRONOLACTONE [Concomitant]
  22. GLUCOSE [Concomitant]
  23. CORSODYL [Concomitant]
  24. CANESTEN [Concomitant]
  25. PHOSPHATE-SANDOZ [Concomitant]
  26. ORAMORPH [Concomitant]
  27. GELOFUSIN [Concomitant]
  28. VINCRISTINE SULFATE [Suspect]
     Indication: NODULAR (FOLLICULAR) LYMPHOMA
     Route: 040
     Dates: start: 20120312
  29. DOXORUBICIN HYDROCHLORIDE [Suspect]
     Indication: NODULAR (FOLLICULAR) LYMPHOMA
     Route: 042
     Dates: start: 20120312
  30. INVESTIGATIONAL DRUG [Suspect]
     Indication: NODULAR (FOLLICULAR) LYMPHOMA
     Route: 042
     Dates: start: 20120312
  31. CYCLOPHOSPHAMIDE [Suspect]
     Indication: NODULAR (FOLLICULAR) LYMPHOMA
     Route: 042
     Dates: start: 20120312
  32. PREDNISONE [Suspect]
     Indication: NODULAR (FOLLICULAR) LYMPHOMA
     Route: 048
     Dates: start: 20120312
  33. C0-CODAMOL [Concomitant]
  34. LANSOPRAZOLE [Concomitant]
  35. QUININE SULFATE [Concomitant]
  36. HOROMONIN [Concomitant]
  37. NAPROXEN [Concomitant]
  38. SERTRALINE [Concomitant]
  39. ONDANSETRON [Concomitant]
  40. PARACETAMOL [Concomitant]
  41. DOMPERIDONE [Concomitant]
  42. ALLOPURINOL [Concomitant]
  43. NYSTATIN [Concomitant]
  44. METOCLOPRAMIDE [Concomitant]
  45. CIPROFLOXACIN [Concomitant]
  46. AMOXICILLIN\CLAVULANATE POTASSIUM [Concomitant]
  47. FILGRASTIM [Concomitant]
  48. AMILORIDE [Concomitant]
  49. SLOW K [Concomitant]
  50. TEICOPLANIN [Concomitant]
  51. MEROPENEM [Concomitant]
  52. VANCOMYCIN [Concomitant]
  53. ENOXAPARIN [Concomitant]
  54. LORAZEPAM [Concomitant]
  55. FLUCONAZOLE [Concomitant]
  56. FERROUS SULPHATE [Concomitant]
  57. FLUCLOXACILLIN [Concomitant]
  58. AMBISOME [Concomitant]
  59. ACICLOVIR [Concomitant]
  60. PREDNISOLONE [Concomitant]

REACTIONS (5)
  - Pulmonary embolism [None]
  - Pulmonary cavitation [None]
  - Fungal infection [None]
  - Bacterial infection [None]
  - Respiratory failure [None]
